FAERS Safety Report 20393652 (Version 1)
Quarter: 2022Q1

REPORT INFORMATION
  Report Type: Spontaneous
  Country: PT (occurrence: PT)
  Receive Date: 20220128
  Receipt Date: 20220128
  Transmission Date: 20220423
  Serious: Yes (Hospitalization, Other)
  Sender: FDA-Public Use
  Company Number: PT-PAIPHARMA-2022-PT-000014

PATIENT
  Age: 4 Year
  Sex: Male

DRUGS (3)
  1. ETHOSUXIMIDE [Suspect]
     Active Substance: ETHOSUXIMIDE
     Indication: Myoclonic epilepsy
     Dosage: 500 MG DAILY
  2. CLONAZEPAM [Concomitant]
     Active Substance: CLONAZEPAM
  3. VALPROATE SODIUM [Concomitant]
     Active Substance: VALPROATE SODIUM

REACTIONS (1)
  - Toxic epidermal necrolysis [Recovered/Resolved]
